FAERS Safety Report 12203546 (Version 1)
Quarter: 2016Q1

REPORT INFORMATION
  Report Type: Spontaneous
  Country: US (occurrence: None)
  Receive Date: 20160321
  Receipt Date: 20160321
  Transmission Date: 20160526
  Serious: Yes (Life-Threatening)
  Sender: FDA-Public Use
  Company Number: None

PATIENT
  Age: 82 Year
  Sex: Male
  Weight: 69.9 kg

DRUGS (5)
  1. FENTANYL. [Concomitant]
     Active Substance: FENTANYL
  2. VECURONUM [Concomitant]
  3. NORMAL SALINE [Concomitant]
     Active Substance: SODIUM CHLORIDE
  4. NITROGLYCERIN. [Suspect]
     Active Substance: NITROGLYCERIN
     Indication: CARDIAC VALVE DISEASE
     Dosage: TITRATE TITRATE INTRAVENOUS
     Route: 042
     Dates: start: 20160315, end: 20160315
  5. SODIUM BICARBONATE. [Concomitant]
     Active Substance: SODIUM BICARBONATE

REACTIONS (3)
  - Infusion related reaction [None]
  - Product quality issue [None]
  - Hypertension [None]

NARRATIVE: CASE EVENT DATE: 20160315
